FAERS Safety Report 10350083 (Version 1)
Quarter: 2014Q3

REPORT INFORMATION
  Report Type: Spontaneous
  Country: US (occurrence: None)
  Receive Date: 20140728
  Receipt Date: 20140728
  Transmission Date: 20150326
  Serious: No
  Sender: FDA-Public Use
  Company Number: None

PATIENT
  Age: 38 Year
  Sex: Female

DRUGS (1)
  1. SYNTHROID [Suspect]
     Active Substance: LEVOTHYROXINE SODIUM
     Indication: AUTOIMMUNE THYROIDITIS
     Dosage: 1 PILL ONCE DAILY TAKEN BY MOUTH
     Route: 048
     Dates: start: 20140109, end: 20140725

REACTIONS (5)
  - Gingival pain [None]
  - Oral discomfort [None]
  - Dyspepsia [None]
  - Skin burning sensation [None]
  - Glossodynia [None]

NARRATIVE: CASE EVENT DATE: 20140101
